FAERS Safety Report 8473115-9 (Version None)
Quarter: 2012Q2

REPORT INFORMATION
  Report Type: 
  Country: None (occurrence: None)
  Receive Date: 20120627
  Receipt Date: 20120621
  Transmission Date: 20120825
  Serious: Yes (Hospitalization)
  Sender: FDA-Public Use
  Company Number: JP-FRI-1000031260

PATIENT
  Sex: Female

DRUGS (12)
  1. MEMANTINE HCL [Suspect]
     Indication: DEMENTIA WITH LEWY BODIES
     Dosage: 5 MG
     Route: 048
     Dates: start: 20111009, end: 20111013
  2. MADOPAR [Suspect]
     Dosage: 1 TABLET
     Dates: start: 20111028, end: 20111029
  3. GRAMALIL [Concomitant]
     Indication: DEMENTIA WITH LEWY BODIES
     Dosage: 100 MG
     Route: 048
     Dates: end: 20111106
  4. MEMANTINE HCL [Suspect]
     Dosage: 10 MG
     Route: 048
     Dates: start: 20111014
  5. MADOPAR [Suspect]
     Indication: DEMENTIA WITH LEWY BODIES
     Dosage: 6 TABLETS
     Dates: end: 20111018
  6. ZOLOFT [Concomitant]
     Indication: DEMENTIA WITH LEWY BODIES
     Dosage: 50 MG
     Route: 048
  7. ZOLOFT [Concomitant]
     Dosage: DECREASED DOSE
  8. MADOPAR [Suspect]
     Dosage: 2 TABLETS
     Dates: start: 20111019, end: 20111027
  9. ARICEPT [Suspect]
     Dosage: 5 MG
     Route: 048
     Dates: start: 20111104, end: 20111111
  10. GRAMALIL [Concomitant]
     Dosage: 50 MG
     Route: 048
     Dates: start: 20111107
  11. ARICEPT [Suspect]
     Dosage: 3 MG
     Route: 048
     Dates: start: 20111112
  12. ARICEPT [Suspect]
     Indication: DEMENTIA WITH LEWY BODIES
     Dosage: 10 MG
     Route: 048
     Dates: end: 20111103

REACTIONS (3)
  - HALLUCINATION [None]
  - DELUSION [None]
  - DRUG INTERACTION [None]
